FAERS Safety Report 9847125 (Version 1)
Quarter: 2013Q4

REPORT INFORMATION
  Report Type: Spontaneous
  Country: US (occurrence: None)
  Receive Date: 20131223
  Receipt Date: 20131223
  Transmission Date: 20140711
  Serious: Yes (Other)
  Sender: FDA-Public Use
  Company Number: SYM-2013-11946

PATIENT
  Age: 72 Year
  Sex: Female
  Weight: 87.09 kg

DRUGS (7)
  1. XENAZINE (TETRABENAZINE) (12.5 MILLIGRAM, TABLETS) (TETRABENAZINE) [Suspect]
     Indication: PRODUCT USED FOR UNKNOWN INDICATION
     Dosage: 12.5 MG, 3 IN 1 D, ORAL
     Route: 048
  2. SERTRALINE (SERTRALINE) (25 MILLIGRAM, TABLET) (SERTRALINE) [Concomitant]
  3. ATENOLOL (ATENOLOL) (25 MILLIGRAM, TABLET) (ATENOLOL) [Concomitant]
  4. CLONAZEPAM (CLONAZEPAM) (1 MILLIGRAM, TABLET) (CLONAZEPAM) [Concomitant]
  5. NIACIN (NICOTINIC ACID) (125 MILLIGRAM, CAPSULES) (NICOTINIC ACID) [Concomitant]
  6. ASPIRIN ADLT (ACETYLSALICYLIC ACID) (81 MILLIGRAM, TABLET) ACETYLSALICYLIC ACID) [Concomitant]
  7. ANTACID (DIOVOL /00018101/) (CAPSULE) (MAGNESIUM HYDROXIDE, DIMETICONE, ALUMINIUM HYDOXIDE) [Concomitant]

REACTIONS (1)
  - Depression suicidal [None]
